FAERS Safety Report 6244909-5 (Version None)
Quarter: 2009Q2

REPORT INFORMATION
  Report Type: 
  Country: None (occurrence: None)
  Receive Date: 20090625
  Receipt Date: 20090612
  Transmission Date: 20091009
  Serious: Yes (Other)
  Sender: FDA-Public Use
  Company Number: PHHY2009CA23999

PATIENT
  Sex: Male

DRUGS (2)
  1. CLOZARIL [Suspect]
     Indication: SCHIZOPHRENIA
     Dosage: UNK
     Route: 048
  2. CLOZARIL [Suspect]
     Dosage: 100 MG/DAY
     Route: 048

REACTIONS (3)
  - ANXIETY [None]
  - CONCOMITANT DISEASE AGGRAVATED [None]
  - OBSESSIVE-COMPULSIVE DISORDER [None]
